FAERS Safety Report 20028129 (Version 1)
Quarter: 2021Q4

REPORT INFORMATION
  Report Type: Spontaneous
  Country: US (occurrence: US)
  Receive Date: 20211103
  Receipt Date: 20211103
  Transmission Date: 20220303
  Serious: No
  Sender: FDA-Public Use
  Company Number: US-AUROBINDO-AUR-APL-2021-001604

PATIENT
  Age: 81 Year
  Sex: Male
  Weight: 70.03 kg

DRUGS (4)
  1. ESZOPICLONE [Suspect]
     Active Substance: ESZOPICLONE
     Indication: Sleep disorder
     Dosage: 1 DOSAGE FORM, ONCE A DAY AT BED TIME
     Route: 065
     Dates: start: 20210105, end: 20210107
  2. CLONAZEPAM [Concomitant]
     Active Substance: CLONAZEPAM
     Indication: Product used for unknown indication
     Dosage: UNK
     Route: 065
  3. CLONIDINE [Concomitant]
     Active Substance: CLONIDINE
     Indication: Blood pressure measurement
     Dosage: UNK
     Route: 065
     Dates: start: 202010
  4. SEROQUEL [Concomitant]
     Active Substance: QUETIAPINE FUMARATE
     Indication: Blood pressure measurement
     Dosage: UNK
     Route: 065

REACTIONS (7)
  - Chest pain [Recovered/Resolved]
  - Renal pain [Recovered/Resolved]
  - Insomnia [Recovered/Resolved]
  - Renal disorder [Recovered/Resolved]
  - Product taste abnormal [Unknown]
  - Drug ineffective [Unknown]
  - Product quality issue [Unknown]

NARRATIVE: CASE EVENT DATE: 20210105
